FAERS Safety Report 14486456 (Version 1)
Quarter: 2018Q1

REPORT INFORMATION
  Report Type: Spontaneous
  Country: US (occurrence: US)
  Receive Date: 20180203
  Receipt Date: 20180203
  Transmission Date: 20180509
  Serious: Yes (Other)
  Sender: FDA-Public Use
  Company Number: None

PATIENT
  Age: 54 Year
  Sex: Female
  Weight: 82.8 kg

DRUGS (1)
  1. OSELTAMIVIR PHOSPHATE 75 MG ORAL CAPSULE [Suspect]
     Active Substance: OSELTAMIVIR PHOSPHATE
     Indication: INFLUENZA
     Dosage: ?          QUANTITY:1 CAPSULE(S);?
     Route: 048
     Dates: start: 20180131, end: 20180203

REACTIONS (2)
  - Therapy cessation [None]
  - Rash [None]

NARRATIVE: CASE EVENT DATE: 20180203
